FAERS Safety Report 13188957 (Version 1)
Quarter: 2017Q1

REPORT INFORMATION
  Report Type: Spontaneous
  Country: DE (occurrence: DE)
  Receive Date: 20170206
  Receipt Date: 20170206
  Transmission Date: 20170428
  Serious: Yes (Other)
  Sender: FDA-Public Use
  Company Number: DE-DRREDDYS-GER/GER/17/0086877

PATIENT
  Age: 43 Year
  Sex: Female

DRUGS (10)
  1. SERTRALINE [Suspect]
     Active Substance: SERTRALINE HYDROCHLORIDE
     Indication: DEPRESSION
     Route: 048
     Dates: start: 20151128, end: 20160815
  2. FERRLECIT 62.5 MG [Concomitant]
     Indication: IRON DEFICIENCY
     Route: 042
  3. RIOPAN [Concomitant]
     Active Substance: MAGALDRATE
     Indication: DYSPEPSIA
     Route: 048
  4. RENNIE [Concomitant]
     Active Substance: MAGNESIUM CARBONATE
     Indication: DYSPEPSIA
     Route: 048
  5. OMEPRAZOLE. [Concomitant]
     Active Substance: OMEPRAZOLE
     Indication: DYSPEPSIA
     Route: 048
  6. LEVODOPA [Concomitant]
     Active Substance: LEVODOPA
     Indication: RESTLESS LEGS SYNDROME
     Route: 048
  7. AGYRAX [Concomitant]
     Active Substance: MECLIZINE HYDROCHLORIDE
     Indication: NAUSEA
     Route: 048
  8. ATOSIL TROPFEN [Concomitant]
     Indication: SLEEP DISORDER
     Route: 048
     Dates: start: 20160111, end: 20160111
  9. FOLIO [Concomitant]
     Active Substance: FOLIC ACID
     Indication: PROPHYLAXIS OF NEURAL TUBE DEFECT
     Route: 048
  10. NAUSEMA [Concomitant]
     Indication: NAUSEA
     Route: 048

REACTIONS (3)
  - Vomiting in pregnancy [Unknown]
  - Gestational diabetes [Unknown]
  - Exposure during pregnancy [Unknown]
